FAERS Safety Report 9727483 (Version 1)
Quarter: 2013Q4

REPORT INFORMATION
  Report Type: Spontaneous
  Country: IR (occurrence: IR)
  Receive Date: 20131203
  Receipt Date: 20131203
  Transmission Date: 20140711
  Serious: Yes (Other)
  Sender: FDA-Public Use
  Company Number: IR-WATSON-2013-21898

PATIENT
  Age: 22 Year
  Sex: Male

DRUGS (5)
  1. VINCRISTINE (UNKNOWN) [Suspect]
     Indication: DIFFUSE LARGE B-CELL LYMPHOMA
     Dosage: 1.4 MG/M2, ON DAY 1, EVERY 3 WEEKS, 3 CYCLES
     Route: 065
  2. CYCLOPHOSPHAMIDE (UNKNOWN) [Suspect]
     Indication: DIFFUSE LARGE B-CELL LYMPHOMA
     Dosage: 750 MG/M2, ON DAY 1, EVERY 3 WEEKS, 3 CYCLES
     Route: 065
  3. DOXORUBICIN (UNKNOWN) [Suspect]
     Indication: DIFFUSE LARGE B-CELL LYMPHOMA
     Dosage: 50 MG/M2, ON DAY 1, EVERY 3 WEEKS, 3 CYCLES
     Route: 065
  4. PREDNISOLONE (UNKNOWN) [Suspect]
     Indication: DIFFUSE LARGE B-CELL LYMPHOMA
     Dosage: 40 MG/M2, ON DAYS 2-5, EVERY 3 WEEKS, 3 CYCLES
     Route: 065
  5. RITUXIMAB [Suspect]
     Indication: DIFFUSE LARGE B-CELL LYMPHOMA
     Dosage: 375 MG/M2, BEFORE CHEMOTHERAPY
     Route: 065

REACTIONS (1)
  - Bronchopulmonary aspergillosis [Unknown]
